FAERS Safety Report 4768737-2 (Version None)
Quarter: 2005Q3

REPORT INFORMATION
  Report Type: 
  Country: None (occurrence: None)
  Receive Date: 20050914
  Receipt Date: 20050816
  Transmission Date: 20060218
  Serious: Yes (Other)
  Sender: FDA-Public Use
  Company Number: AU-GLAXOSMITHKLINE-B0391063A

PATIENT
  Age: 23 Year
  Sex: Female

DRUGS (2)
  1. ZYBAN [Suspect]
     Route: 048
     Dates: start: 20050811, end: 20050815
  2. ORAL CONTRACEPTIVE [Concomitant]
     Route: 048

REACTIONS (8)
  - BURNING SENSATION [None]
  - DIZZINESS [None]
  - EPIGASTRIC DISCOMFORT [None]
  - HEARING IMPAIRED [None]
  - HYPERSENSITIVITY [None]
  - LOSS OF CONSCIOUSNESS [None]
  - PAIN IN EXTREMITY [None]
  - VISUAL DISTURBANCE [None]
